FAERS Safety Report 8125207-1 (Version None)
Quarter: 2012Q1

REPORT INFORMATION
  Report Type: 
  Country: None (occurrence: None)
  Receive Date: 20120209
  Receipt Date: 20120207
  Transmission Date: 20120608
  Serious: Yes (Other)
  Sender: FDA-Public Use
  Company Number: US-BAYER-2012-012922

PATIENT
  Age: 58 Year
  Sex: Female
  Weight: 68 kg

DRUGS (3)
  1. ALEVE (CAPLET) [Suspect]
     Indication: BACK PAIN
     Dosage: UNK
     Route: 048
     Dates: end: 20120207
  2. TRANXENE [Concomitant]
  3. CETIRIZINE [Concomitant]

REACTIONS (4)
  - THROAT IRRITATION [None]
  - ANAPHYLACTIC REACTION [None]
  - SWELLING FACE [None]
  - EYE SWELLING [None]
